FAERS Safety Report 7493735-8 (Version None)
Quarter: 2011Q2

REPORT INFORMATION
  Report Type: 
  Country: None (occurrence: None)
  Receive Date: 20110520
  Receipt Date: 20110509
  Transmission Date: 20111010
  Serious: Yes (Other)
  Sender: FDA-Public Use
  Company Number: US-ELI_LILLY_AND_COMPANY-US201105003833

PATIENT

DRUGS (2)
  1. GEMCITABINE HYDROCHLORIDE [Suspect]
     Indication: ADENOCARCINOMA PANCREAS
     Dosage: 1500 MG/M2, 2/W
     Route: 065
  2. ERLOTINIB HYDROCHLORIDE [Concomitant]
     Dosage: 150 MG, QD
     Route: 065

REACTIONS (1)
  - CELLULITIS [None]
